FAERS Safety Report 14664496 (Version 4)
Quarter: 2019Q1

REPORT INFORMATION
  Report Type: Spontaneous
  Country: NL (occurrence: NL)
  Receive Date: 20180321
  Receipt Date: 20190302
  Transmission Date: 20190417
  Serious: Yes (Hospitalization)
  Sender: FDA-Public Use
  Company Number: NL-AUROBINDO-AUR-APL-2018-014737

PATIENT

DRUGS (9)
  1. OXYCODONE [Interacting]
     Active Substance: OXYCODONE
     Dosage: 20 MILLIGRAM, ONCE A DAY
     Route: 065
     Dates: start: 20170828
  2. QUETIAPINE FILM-COATED TABLET [Suspect]
     Active Substance: QUETIAPINE
     Indication: SLEEP DISORDER
     Dosage: IN THE EVENING
     Route: 048
     Dates: start: 20170828
  3. TRANYLCYPROMINE [Interacting]
     Active Substance: TRANYLCYPROMINE
     Dosage: 30 MILLIGRAM, ONCE A DAY (20 MG IN THE MORNING AND 10 MG IN THE AFTERNOON)
     Route: 065
  4. TRANYLCYPROMINE [Interacting]
     Active Substance: TRANYLCYPROMINE
     Dosage: 40 MG IN THE MORNING AND AFTERNOON
     Route: 048
  5. CLOBAZAM. [Concomitant]
     Active Substance: CLOBAZAM
     Indication: SUPPORTIVE CARE
     Dosage: 1 MILLIGRAM, ONCE A DAY
     Route: 048
  6. OXYCODONE [Suspect]
     Active Substance: OXYCODONE
     Indication: PAIN
     Dosage: 10 MILLIGRAM, TWO TIMES A DAY
     Route: 065
     Dates: start: 20170828
  7. OXYCODONE [Interacting]
     Active Substance: OXYCODONE
     Dosage: 5 MILLIGRAM, TWO TIMES A DAY
     Route: 065
     Dates: start: 201709
  8. TRACYDAL [Interacting]
     Active Substance: TRANYLCYPROMINE SULFATE
     Indication: DEPRESSION
     Dosage: 80 MILLIGRAM, ONCE A DAY
     Route: 048
  9. TRANYLCYPROMINE [Interacting]
     Active Substance: TRANYLCYPROMINE
     Indication: DEPRESSION
     Dosage: 40 MILLIGRAM, TWO TIMES A DAY IN THE MORNING AND AFTERNOON
     Route: 065

REACTIONS (13)
  - Tremor [Recovered/Resolved]
  - Dry mouth [Not Recovered/Not Resolved]
  - Middle ear effusion [Not Recovered/Not Resolved]
  - Nerve compression [Unknown]
  - Ankle fracture [Recovered/Resolved]
  - Headache [Recovered/Resolved]
  - Drug interaction [Recovered/Resolved]
  - Restlessness [Recovered/Resolved]
  - Fall [Recovered/Resolved]
  - Blood pressure fluctuation [Recovered/Resolved]
  - Overdose [Recovered/Resolved]
  - Contraindicated product administered [Recovered/Resolved]
  - Depression [Recovered/Resolved]

NARRATIVE: CASE EVENT DATE: 20170828
